FAERS Safety Report 9803356 (Version 1)
Quarter: 2014Q1

REPORT INFORMATION
  Report Type: Spontaneous
  Country: BR (occurrence: BR)
  Receive Date: 20140108
  Receipt Date: 20140108
  Transmission Date: 20141002
  Serious: Yes (Other)
  Sender: FDA-Public Use
  Company Number: PHHY2014BR001519

PATIENT
  Sex: Male

DRUGS (7)
  1. TRILEPTAL [Suspect]
     Dosage: 0.5 DF, DAILY
     Route: 048
  2. EXELON PATCH [Suspect]
     Indication: DEMENTIA ALZHEIMER^S TYPE
     Dosage: 9.5 MG, 1 PATCH DAILY
     Route: 062
     Dates: end: 201312
  3. NEOZINE [Concomitant]
     Indication: AGGRESSION
     Dosage: 20 DRP, DAILY
     Route: 048
     Dates: start: 201312
  4. CLONAZEPAM [Concomitant]
     Indication: ANXIETY
     Dosage: 1 DF, UNK
     Route: 048
     Dates: start: 201312
  5. HALDOL ^JANSSEN-CILAG^ [Concomitant]
     Indication: PSYCHOTIC DISORDER
     Dosage: 0.5 DF, DAILY
     Route: 048
     Dates: start: 201312
  6. FENERGAN [Concomitant]
     Indication: SLEEP DISORDER
     Dosage: 1 DF, DAILY
     Route: 048
  7. CALCIUM 600 PLUS VITAMIN D3 [Concomitant]
     Indication: BONE DISORDER
     Dosage: 1 DF, DAILY
     Route: 048
     Dates: start: 201312

REACTIONS (1)
  - Aphasia [Not Recovered/Not Resolved]
